FAERS Safety Report 12697715 (Version 1)
Quarter: 2016Q3

REPORT INFORMATION
  Report Type: Report from Study
  Country: ES (occurrence: ES)
  Receive Date: 20160830
  Receipt Date: 20160830
  Transmission Date: 20161109
  Serious: Yes (Hospitalization)
  Sender: FDA-Public Use
  Company Number: ES-EISAI MEDICAL RESEARCH-EC-2016-019732

PATIENT
  Age: 42 Year
  Sex: Female
  Weight: 66.7 kg

DRUGS (12)
  1. ABSTRAL [Concomitant]
     Active Substance: FENTANYL CITRATE
  2. LORAZEPAM. [Concomitant]
     Active Substance: LORAZEPAM
  3. GABAPENTINA [Concomitant]
     Active Substance: GABAPENTIN
  4. NATECAL D [Concomitant]
     Active Substance: CALCIUM CARBONATE\CHOLECALCIFEROL
  5. IBUPROFEN. [Concomitant]
     Active Substance: IBUPROFEN
  6. ERIBULIN [Suspect]
     Active Substance: ERIBULIN
     Indication: BREAST CANCER METASTATIC
     Route: 041
     Dates: start: 20150729
  7. HIDROFEROL [Concomitant]
     Active Substance: CALCIFEDIOL
  8. OMEPRAZOLE. [Concomitant]
     Active Substance: OMEPRAZOLE
  9. PARACETAMOL [Concomitant]
     Active Substance: ACETAMINOPHEN
  10. OXICODONA [Concomitant]
  11. POL6326 [Suspect]
     Active Substance: INVESTIGATIONAL PRODUCT
     Indication: BREAST CANCER METASTATIC
     Route: 041
     Dates: start: 20160728
  12. NALOXONA [Concomitant]

REACTIONS (1)
  - Febrile neutropenia [Recovered/Resolved]

NARRATIVE: CASE EVENT DATE: 20150830
